FAERS Safety Report 9651043 (Version 4)
Quarter: 2015Q4

REPORT INFORMATION
  Report Type: Report from Study
  Country: BR (occurrence: BR)
  Receive Date: 20131029
  Receipt Date: 20151013
  Transmission Date: 20160305
  Serious: Yes (Other)
  Sender: FDA-Public Use
  Company Number: PHHY2013BR120945

PATIENT
  Age: 66 Year
  Sex: Female
  Weight: 61 kg

DRUGS (12)
  1. BEROTEC [Suspect]
     Active Substance: FENOTEROL HYDROBROMIDE
     Indication: ASTHMA
     Dosage: UNK UNK, BID (6 AM AND 6 PM)
     Route: 055
  2. PLAVIX [Concomitant]
     Active Substance: CLOPIDOGREL BISULFATE
     Indication: HEADACHE
     Dosage: UNK UKN, QOD
     Route: 048
  3. FRONTAL [Concomitant]
     Active Substance: ALPRAZOLAM
     Indication: DEPENDENCE
  4. PLAVIX [Concomitant]
     Active Substance: CLOPIDOGREL BISULFATE
     Indication: VOMITING
  5. DIOVAN [Suspect]
     Active Substance: VALSARTAN
     Indication: HYPERTENSION
     Dosage: 2 DF (160 MG), QD (3 YEARS AGO)
     Route: 048
     Dates: start: 201310
  6. LAXATIVE [Suspect]
     Active Substance: UNSPECIFIED INGREDIENT
     Indication: CONSTIPATION
     Dosage: 46 MG, QW
     Route: 048
  7. RIVOTRIL [Suspect]
     Active Substance: CLONAZEPAM
     Indication: ANXIETY
     Dosage: 0.5 DF (2 MG), QHS
     Route: 048
  8. FRONTAL [Concomitant]
     Active Substance: ALPRAZOLAM
     Indication: ANXIETY
     Dosage: 1 MG, BID (9 YEARS AGO)
     Route: 048
  9. PLAVIX [Concomitant]
     Active Substance: CLOPIDOGREL BISULFATE
     Indication: DIZZINESS
  10. DIOVAN [Suspect]
     Active Substance: VALSARTAN
     Dosage: 0.5 DF (160 MG), QD
     Route: 048
     Dates: start: 20131023
  11. SINVASTACOR [Concomitant]
     Active Substance: SIMVASTATIN
     Indication: BLOOD CHOLESTEROL INCREASED
     Dosage: 1 DF, QD (STARTED 19 YEARS AGO)
     Route: 048
  12. BEROTEC [Suspect]
     Active Substance: FENOTEROL HYDROBROMIDE
     Indication: DYSPNOEA

REACTIONS (27)
  - Swelling face [Recovered/Resolved]
  - Jaundice [Recovering/Resolving]
  - Syncope [Recovering/Resolving]
  - Movement disorder [Recovered/Resolved]
  - Muscle spasms [Not Recovered/Not Resolved]
  - Loss of consciousness [Unknown]
  - Erythema [Recovered/Resolved]
  - Fall [Not Recovered/Not Resolved]
  - Concomitant disease aggravated [Not Recovered/Not Resolved]
  - Nasopharyngitis [Recovered/Resolved]
  - Heart rate increased [Recovered/Resolved]
  - Pain in extremity [Not Recovered/Not Resolved]
  - Functional gastrointestinal disorder [Not Recovered/Not Resolved]
  - Dysphonia [Unknown]
  - Arthralgia [Recovering/Resolving]
  - Mouth haemorrhage [Not Recovered/Not Resolved]
  - Rhinitis [Recovered/Resolved]
  - Blood pressure fluctuation [Unknown]
  - Cyanosis [Recovered/Resolved]
  - Groin pain [Recovering/Resolving]
  - Constipation [Not Recovered/Not Resolved]
  - Wrong technique in product usage process [Unknown]
  - Vertigo [Recovered/Resolved]
  - Blood pressure increased [Recovering/Resolving]
  - Back pain [Recovering/Resolving]
  - Asthmatic crisis [Not Recovered/Not Resolved]
  - Hypotension [Unknown]

NARRATIVE: CASE EVENT DATE: 201310
